FAERS Safety Report 16108658 (Version 1)
Quarter: 2019Q1

REPORT INFORMATION
  Report Type: Spontaneous
  Country: GB (occurrence: GB)
  Receive Date: 20190323
  Receipt Date: 20190323
  Transmission Date: 20190418
  Serious: Yes (Hospitalization)
  Sender: FDA-Public Use
  Company Number: GB-ACCORD-115209

PATIENT
  Age: 4 Year
  Sex: Female
  Weight: 14.2 kg

DRUGS (1)
  1. METHOTREXATE. [Suspect]
     Active Substance: METHOTREXATE
     Indication: POLYARTHRITIS
     Route: 048
     Dates: start: 20050207

REACTIONS (2)
  - Lower respiratory tract infection [Unknown]
  - Otitis media [Unknown]

NARRATIVE: CASE EVENT DATE: 20070618
